FAERS Safety Report 10607590 (Version 1)
Quarter: 2014Q4

REPORT INFORMATION
  Report Type: Report from Study
  Country: PE (occurrence: PE)
  Receive Date: 20141125
  Receipt Date: 20141125
  Transmission Date: 20150529
  Serious: Yes (Death)
  Sender: FDA-Public Use
  Company Number: PE-BRISTOL-MYERS SQUIBB COMPANY-21611330

PATIENT
  Age: 74 Year
  Sex: Male

DRUGS (1)
  1. ERBITUX [Suspect]
     Active Substance: CETUXIMAB
     Indication: HEAD AND NECK CANCER
     Dosage: 1DF-100MG/2OML?1 AMPOUL
     Dates: start: 20141024, end: 20141024

REACTIONS (2)
  - Decreased appetite [Fatal]
  - Asthenia [Fatal]

NARRATIVE: CASE EVENT DATE: 20141025
